FAERS Safety Report 15629681 (Version 1)
Quarter: 2018Q4

REPORT INFORMATION
  Report Type: Report from Study
  Country: US (occurrence: US)
  Receive Date: 20181117
  Receipt Date: 20181117
  Transmission Date: 20190205
  Serious: Yes (Other)
  Sender: FDA-Public Use
  Company Number: US-ROCHE-2216848

PATIENT

DRUGS (2)
  1. HU5F9-G4 [Suspect]
     Active Substance: INVESTIGATIONAL PRODUCT
     Indication: NON-HODGKIN^S LYMPHOMA
     Dosage: 1 MG PER KILOGRAM FOLLOWED 1 WEEK LATER BY THE RECEIPT OF ESCALATING MAINTENANCE DOSES 20 MG PER KIL
     Route: 042
  2. RITUXIMAB. [Suspect]
     Active Substance: RITUXIMAB
     Indication: NON-HODGKIN^S LYMPHOMA
     Dosage: WEEKLY IN CYCLE 1 STARTING IN WEEK 2, AND THEN MONTHLY IN CYCLES 2 THROUGH 6.
     Route: 042

REACTIONS (1)
  - Pulmonary embolism [Recovered/Resolved]
